FAERS Safety Report 5944300-2 (Version None)
Quarter: 2008Q4

REPORT INFORMATION
  Report Type: 
  Country: None (occurrence: None)
  Receive Date: 20081105
  Receipt Date: 20081030
  Transmission Date: 20090506
  Serious: Yes (Other)
  Sender: FDA-Public Use
  Company Number: CHPA2008US18698

PATIENT
  Age: 68 Year
  Sex: Female

DRUGS (2)
  1. BENEFIBER W/WHEAT DEXTRIN (NCH) (WEAT DEXTRIN) POWDER [Suspect]
     Indication: NUTRITIONAL SUPPORT
     Dosage: 1 TSP, TID, ORAL; 1 TSP, TID, ORAL
     Route: 048
     Dates: start: 20080501, end: 20080101
  2. BENEFIBER W/WHEAT DEXTRIN (NCH) (WEAT DEXTRIN) POWDER [Suspect]
     Indication: NUTRITIONAL SUPPORT
     Dosage: 1 TSP, TID, ORAL; 1 TSP, TID, ORAL
     Route: 048
     Dates: start: 20081027

REACTIONS (1)
  - COLITIS [None]
